FAERS Safety Report 23339168 (Version 1)
Quarter: 2023Q4

REPORT INFORMATION
  Report Type: Spontaneous
  Country: US (occurrence: US)
  Receive Date: 20231226
  Receipt Date: 20231226
  Transmission Date: 20240109
  Serious: Yes (Other)
  Sender: FDA-Public Use
  Company Number: US-TAKEDA-2023TUS123407

PATIENT
  Age: 36 Year
  Sex: Male

DRUGS (1)
  1. TRINTELLIX [Suspect]
     Active Substance: VORTIOXETINE HYDROBROMIDE
     Indication: Major depression
     Dosage: UNK
     Route: 065

REACTIONS (21)
  - Mental impairment [Unknown]
  - Depressed mood [Unknown]
  - Anhedonia [Unknown]
  - Appetite disorder [Unknown]
  - Weight abnormal [Unknown]
  - Insomnia [Unknown]
  - Hypersomnia [Unknown]
  - Psychomotor hyperactivity [Unknown]
  - Psychomotor retardation [Unknown]
  - Fatigue [Unknown]
  - Asthenia [Unknown]
  - Feeling guilty [Unknown]
  - Feelings of worthlessness [Unknown]
  - Abulia [Unknown]
  - Disturbance in attention [Unknown]
  - Anxiety [Unknown]
  - Feeling abnormal [Unknown]
  - Tachyphrenia [Unknown]
  - Panic attack [Unknown]
  - Irritability [Unknown]
  - Negative thoughts [Unknown]
